FAERS Safety Report 21676271 (Version 1)
Quarter: 2022Q4

REPORT INFORMATION
  Report Type: Spontaneous
  Country: US (occurrence: None)
  Receive Date: 20221201
  Receipt Date: 20221201
  Transmission Date: 20230112
  Serious: No
  Sender: FDA-Public Use
  Company Number: None

PATIENT
  Age: 85 Year
  Sex: Female

DRUGS (1)
  1. PROLIA [Suspect]
     Active Substance: DENOSUMAB
     Dosage: 60MG OTHER SUBCUTANEOUS
     Route: 058
     Dates: start: 201908, end: 202209

REACTIONS (1)
  - Death [None]

NARRATIVE: CASE EVENT DATE: 20221126
